FAERS Safety Report 4896550-4 (Version None)
Quarter: 2006Q1

REPORT INFORMATION
  Report Type: 
  Country: None (occurrence: None)
  Receive Date: 20060131
  Receipt Date: 20060120
  Transmission Date: 20060701
  Serious: Yes (Hospitalization, Other)
  Sender: FDA-Public Use
  Company Number: 2006GB00111

PATIENT
  Age: 46 Year
  Sex: Female

DRUGS (1)
  1. LOSEC [Suspect]
     Indication: BARRETT'S OESOPHAGUS
     Route: 048
     Dates: start: 20051001

REACTIONS (5)
  - CONJUNCTIVAL HAEMORRHAGE [None]
  - DRY MOUTH [None]
  - LOCAL SWELLING [None]
  - PHARYNGOLARYNGEAL PAIN [None]
  - SKIN ULCER [None]
